FAERS Safety Report 4656352-0 (Version None)
Quarter: 2005Q2

REPORT INFORMATION
  Report Type: 
  Country: None (occurrence: None)
  Receive Date: 20050509
  Receipt Date: 20050428
  Transmission Date: 20051028
  Serious: Yes (Congenital Anomaly)
  Sender: FDA-Public Use
  Company Number: JP-MERCK-0505USA00195B1

PATIENT

DRUGS (2)
  1. ZOCOR [Suspect]
  2. ZOCOR [Suspect]

REACTIONS (1)
  - FOETAL MALFORMATION [None]
